FAERS Safety Report 5145453-9 (Version None)
Quarter: 2006Q4

REPORT INFORMATION
  Report Type: 
  Country: None (occurrence: None)
  Receive Date: 20061101
  Receipt Date: 20060530
  Transmission Date: 20070319
  Serious: Yes (Hospitalization)
  Sender: FDA-Public Use
  Company Number: 20063277

PATIENT
  Sex: Female

DRUGS (8)
  1. LIORESAL [Suspect]
     Indication: MUSCLE SPASTICITY
     Dosage: MCG, DAILY, INTRATHECAL
     Route: 037
  2. MARINOL [Concomitant]
  3. LISINOPRIL [Concomitant]
  4. CELEXA [Concomitant]
  5. TYLENOL W/ CODEINE NO. 3 [Concomitant]
  6. OXYTOL [Concomitant]
  7. ASTELIN [Concomitant]
  8. ORAL BACLOFEN [Concomitant]

REACTIONS (12)
  - AGITATION [None]
  - CONDITION AGGRAVATED [None]
  - DRUG INEFFECTIVE [None]
  - HYPOTONIA [None]
  - MENTAL STATUS CHANGES [None]
  - MIOSIS [None]
  - MUSCLE SPASTICITY [None]
  - OPIATES POSITIVE [None]
  - OVERDOSE [None]
  - RESPIRATORY RATE DECREASED [None]
  - SOMNOLENCE [None]
  - UNRESPONSIVE TO STIMULI [None]
